FAERS Safety Report 17424257 (Version 1)
Quarter: 2020Q1

REPORT INFORMATION
  Report Type: Spontaneous
  Country: DE (occurrence: DE)
  Receive Date: 20200217
  Receipt Date: 20200217
  Transmission Date: 20200409
  Serious: Yes (Hospitalization)
  Sender: FDA-Public Use
  Company Number: DE-TEVA-2020-DE-1186565

PATIENT
  Age: 38 Year
  Sex: Female
  Weight: 80 kg

DRUGS (2)
  1. AMOXICILLIN. [Suspect]
     Active Substance: AMOXICILLIN
     Indication: HELICOBACTER INFECTION
     Dosage: 10 DAYS 2 X 1 TABLET A DAY, 2 DOSAGE FORMS
     Route: 048
     Dates: start: 20200117, end: 20200126
  2. CLARILIND FILMTABLETTEN [Suspect]
     Active Substance: CLARITHROMYCIN
     Indication: HELICOBACTER INFECTION
     Dosage: 10 TABLETS 2 TIMES A DAY FOR 10 DAYS, 2 DOSAGE FORMS
     Route: 048
     Dates: start: 20200117, end: 20200125

REACTIONS (2)
  - Pruritus [Recovering/Resolving]
  - Rash [Recovering/Resolving]

NARRATIVE: CASE EVENT DATE: 20200125
